FAERS Safety Report 8993388 (Version 1)
Quarter: 2013Q1

REPORT INFORMATION
  Report Type: Spontaneous
  Country: US (occurrence: US)
  Receive Date: 20130102
  Receipt Date: 20130102
  Transmission Date: 20140127
  Serious: Yes (Other)
  Sender: FDA-Public Use
  Company Number: CHPA2012US025718

PATIENT
  Age: 72 Year
  Sex: Female

DRUGS (1)
  1. SLOW FE BROWN [Suspect]
     Indication: MINERAL SUPPLEMENTATION
     Dosage: 1 TABLET, EVERY OTHER DAY
     Route: 048

REACTIONS (3)
  - Breast mass [Recovered/Resolved]
  - Blood iron decreased [Recovered/Resolved]
  - Incorrect drug administration duration [Unknown]
